FAERS Safety Report 5551195-8 (Version None)
Quarter: 2007Q4

REPORT INFORMATION
  Report Type: 
  Country: None (occurrence: None)
  Receive Date: 20071210
  Receipt Date: 20071122
  Transmission Date: 20080405
  Serious: Yes (Other)
  Sender: FDA-Public Use
  Company Number: VNL_00799_2007

PATIENT
  Sex: Female

DRUGS (9)
  1. APO-GO [Suspect]
     Indication: PARKINSON'S DISEASE
     Dosage: 100 MG PER DAY SUBCUTANEOUS
     Route: 058
     Dates: start: 20061024
  2. CO-BENELDOPA            (MADOPAR DISPERSIBLE            (CO-BENELDOPA) [Suspect]
     Indication: PARKINSON'S DISEASE
     Dosage: 250 MG ORAL
     Route: 048
  3. SINEMET [Suspect]
     Indication: PARKINSON'S DISEASE
     Dosage: 375 MG ORAL
     Route: 048
  4. SINEMET  HALF CR           (HALF SINEMET CR)            (CO-CARELDOPA) [Suspect]
     Indication: PARKINSON'S DISEASE
     Dosage: 250 MG ORAL
     Route: 048
  5. PRAMIPEXOLE DIHYDROCHLORIDE [Concomitant]
     Indication: PARKINSON'S DISEASE
  6. AMITRIPTLINE HCL [Concomitant]
  7. ATENOLOL [Concomitant]
  8. LISINOPRIL [Concomitant]
  9. METFORMIN HCL [Concomitant]

REACTIONS (5)
  - COOMBS DIRECT TEST POSITIVE [None]
  - FALL [None]
  - GAIT DISTURBANCE [None]
  - IRON DEFICIENCY ANAEMIA [None]
  - SOMNOLENCE [None]
